FAERS Safety Report 8125642-1 (Version None)
Quarter: 2012Q1

REPORT INFORMATION
  Report Type: 
  Country: None (occurrence: None)
  Receive Date: 20120209
  Receipt Date: 20120201
  Transmission Date: 20120608
  Serious: Yes (Hospitalization)
  Sender: FDA-Public Use
  Company Number: US-BAYER-201036082NA

PATIENT
  Age: 18 Year
  Sex: Female
  Weight: 86.168 kg

DRUGS (4)
  1. YAZ [Suspect]
     Indication: PREMENSTRUAL SYNDROME
     Dosage: UNK
     Route: 048
     Dates: start: 20060101, end: 20080101
  2. YAZ [Suspect]
     Indication: MENORRHAGIA
  3. LEVAQUIN [Concomitant]
     Dosage: UNK UNK, TID
  4. YAZ [Suspect]
     Indication: ABDOMINAL PAIN LOWER

REACTIONS (11)
  - SCAR [None]
  - ANXIETY [None]
  - ABDOMINAL DISTENSION [None]
  - DIARRHOEA [None]
  - CHOLECYSTECTOMY [None]
  - FLATULENCE [None]
  - DYSPEPSIA [None]
  - WEIGHT INCREASED [None]
  - CHOLECYSTITIS [None]
  - CONSTIPATION [None]
  - DEPRESSION [None]
